FAERS Safety Report 9404287 (Version 1)
Quarter: 2013Q3

REPORT INFORMATION
  Report Type: Spontaneous
  Country: US (occurrence: None)
  Receive Date: 20130716
  Receipt Date: 20130716
  Transmission Date: 20140515
  Serious: No
  Sender: FDA-Public Use
  Company Number: None

PATIENT
  Age: 59 Year
  Sex: Male
  Weight: 64.5 kg

DRUGS (1)
  1. ORENCIA [Suspect]
     Route: 042
     Dates: start: 20130711

REACTIONS (2)
  - Pulmonary congestion [None]
  - Wheezing [None]
